FAERS Safety Report 20189441 (Version 3)
Quarter: 2022Q4

REPORT INFORMATION
  Report Type: Report from Study
  Country: US (occurrence: US)
  Receive Date: 20211215
  Receipt Date: 20221208
  Transmission Date: 20230113
  Serious: Yes (Hospitalization)
  Sender: FDA-Public Use
  Company Number: US-GLAXOSMITHKLINE-US2021GSK248792

PATIENT

DRUGS (21)
  1. DOSTARLIMAB [Suspect]
     Active Substance: DOSTARLIMAB
     Indication: Breast cancer
     Dosage: 500 MG, Z-Q3W
     Route: 042
     Dates: start: 20210702, end: 20210702
  2. DOSTARLIMAB [Suspect]
     Active Substance: DOSTARLIMAB
     Dosage: 500 MG, Z- Q3W
     Route: 042
     Dates: start: 20210831, end: 20210831
  3. PACLITAXEL [Suspect]
     Active Substance: PACLITAXEL
     Indication: Breast cancer
     Dosage: 15 MG (ENCEQUIDAR)+ 390 MG (PACLITAXEL) Z (3 DAYS QW)
     Route: 048
     Dates: start: 20210702, end: 20210918
  4. DOXORUBICIN [Suspect]
     Active Substance: DOXORUBICIN
     Indication: Breast cancer
     Dosage: 110 MG, Z(Q2W)
     Route: 042
     Dates: start: 20211007, end: 20211007
  5. DOXORUBICIN [Suspect]
     Active Substance: DOXORUBICIN
     Dosage: 110 MG, Z
     Route: 042
     Dates: start: 20211116, end: 20211116
  6. CYCLOPHOSPHAMIDE [Suspect]
     Active Substance: CYCLOPHOSPHAMIDE
     Indication: Breast cancer
     Dosage: 100 MG, Z-Q2W
     Route: 042
     Dates: start: 20211007, end: 20211007
  7. CYCLOPHOSPHAMIDE [Suspect]
     Active Substance: CYCLOPHOSPHAMIDE
     Dosage: 100 MG, Z-Q2W
     Route: 042
     Dates: start: 20211116, end: 20211116
  8. COMPAZINE [Concomitant]
     Active Substance: PROCHLORPERAZINE MALEATE
     Indication: Nausea
     Dosage: 5 MG
     Route: 048
     Dates: start: 20211126
  9. DECADRON [Concomitant]
     Active Substance: DEXAMETHASONE
     Indication: Inflammation
     Dosage: 4 MG, QD
     Route: 048
     Dates: start: 20211126
  10. CORTEF [Concomitant]
     Active Substance: HYDROCORTISONE
     Indication: Inflammation
     Dosage: 10 MG, QD
     Route: 048
     Dates: start: 20211126
  11. LORAZEPAM [Concomitant]
     Active Substance: LORAZEPAM
     Indication: Anxiety
     Dosage: 0.5 MG
     Route: 048
     Dates: start: 20211126
  12. TYLENOL [Concomitant]
     Active Substance: ACETAMINOPHEN
     Indication: Pain
     Dosage: 325 MG, PRN
     Route: 048
  13. CALTRATE (CALCIUM + COLECALCIFEROL) [Concomitant]
     Indication: Product used for unknown indication
     Dosage: 1 DF, QD
     Route: 048
  14. ZARXIO [Concomitant]
     Active Substance: FILGRASTIM-SNDZ
     Indication: Product used for unknown indication
     Dosage: 396 MG, QD (3 DAYS AFTER CHEMOTHERAPY)
     Route: 058
  15. EMLA [Concomitant]
     Active Substance: LIDOCAINE\PRILOCAINE
     Indication: Pain
     Dosage: UNK
     Route: 061
  16. CLARITIN [Concomitant]
     Active Substance: LORATADINE
     Indication: Product used for unknown indication
     Dosage: 10 MG, PRN
  17. ATIVAN [Concomitant]
     Active Substance: LORAZEPAM
     Indication: Product used for unknown indication
     Dosage: 1 DF, PRN
     Route: 048
  18. ZOFRAN [Concomitant]
     Active Substance: ONDANSETRON HYDROCHLORIDE
     Indication: Nausea
     Dosage: 1 DF, PRN
     Route: 048
  19. IMITREX [Concomitant]
     Active Substance: SUMATRIPTAN SUCCINATE
     Indication: Migraine
     Dosage: 1-2 DF, REPEAT DOSE IN 2 HOURS - MAX 8 TABLETS IN 24 HOURS
     Route: 048
  20. NEULASTA [Concomitant]
     Active Substance: PEGFILGRASTIM
     Indication: Neutropenia
     Dosage: 6 MG
     Route: 030
     Dates: start: 20211116, end: 20211117
  21. ENCEQUIDAR MESYLATE MONOHYDRATE [Suspect]
     Active Substance: ENCEQUIDAR MESYLATE MONOHYDRATE

REACTIONS (1)
  - Sepsis [Recovered/Resolved]

NARRATIVE: CASE EVENT DATE: 20211126
